FAERS Safety Report 10432712 (Version 1)
Quarter: 2014Q3

REPORT INFORMATION
  Report Type: Spontaneous
  Country: US (occurrence: None)
  Receive Date: 20140903
  Receipt Date: 20140903
  Transmission Date: 20150326
  Serious: Yes (Hospitalization, Other)
  Sender: FDA-Public Use
  Company Number: 2010S1000466

PATIENT
  Age: 63 Year
  Sex: Male
  Weight: 79 kg

DRUGS (8)
  1. GOLYTELY [Suspect]
     Active Substance: POLYETHYLENE GLYCOL 3350\POTASSIUM CHLORIDE\SODIUM BICARBONATE\SODIUM CHLORIDE\SODIUM SULFATE ANHYDROUS
     Indication: COLONOSCOPY
  2. PLETAL [Concomitant]
     Active Substance: CILOSTAZOL
  3. LISINOPRIL. [Concomitant]
     Active Substance: LISINOPRIL
  4. PHOSPHO-SODA [Suspect]
     Active Substance: SODIUM PHOSPHATE, DIBASIC\SODIUM PHOSPHATE, MONOBASIC
     Indication: COLONOSCOPY
     Dosage: TOTAL, ORAL
     Route: 048
     Dates: start: 20070430, end: 20070501
  5. PLAVIX [Concomitant]
     Active Substance: CLOPIDOGREL BISULFATE
  6. ACIPHEX [Concomitant]
     Active Substance: RABEPRAZOLE SODIUM
  7. TRICOR [Concomitant]
     Active Substance: FENOFIBRATE
  8. TOPROL (METOPROLOL SUCCINATE) [Concomitant]

REACTIONS (23)
  - Gastrooesophageal reflux disease [None]
  - Dizziness [None]
  - Electrocardiogram T wave inversion [None]
  - Gastroenteritis [None]
  - Mucous stools [None]
  - Nausea [None]
  - Diarrhoea [None]
  - Abdominal pain [None]
  - Hypotension [None]
  - Blood thyroid stimulating hormone increased [None]
  - Haemorrhoids [None]
  - Muscle spasms [None]
  - Paraesthesia [None]
  - Hypovolaemia [None]
  - Dyspepsia [None]
  - Hiatus hernia [None]
  - ECG signs of myocardial ischaemia [None]
  - Acute phosphate nephropathy [None]
  - Vomiting [None]
  - Renal failure acute [None]
  - Hypoaesthesia [None]
  - Prostatomegaly [None]
  - Gastritis [None]

NARRATIVE: CASE EVENT DATE: 20070502
